FAERS Safety Report 7596184-7 (Version None)
Quarter: 2011Q3

REPORT INFORMATION
  Report Type: 
  Country: None (occurrence: None)
  Receive Date: 20110707
  Receipt Date: 20110629
  Transmission Date: 20111222
  Serious: Yes (Hospitalization)
  Sender: FDA-Public Use
  Company Number: US-ALEXION-A201100840

PATIENT
  Sex: Female

DRUGS (14)
  1. EPOGEN [Concomitant]
  2. SOLIRIS [Suspect]
     Indication: PAROXYSMAL NOCTURNAL HAEMOGLOBINURIA
     Dosage: UNK
     Route: 042
  3. COUMADIN [Concomitant]
     Dosage: 6 MG QD EXCEPT 5 MG ON M/W/F
  4. FERROUS SULFATE TAB [Concomitant]
     Dosage: 325 MG, QD
     Route: 048
  5. PRILOSEC [Concomitant]
     Dosage: 20 MG, QD
  6. VITAMIN D [Concomitant]
     Dosage: UNK, QD
  7. KEPPRA [Concomitant]
     Dosage: 1000 MG, BID
  8. COREG [Concomitant]
     Dosage: 25 MG, QD
  9. HYDROCHLOROTHIAZIDE [Concomitant]
     Dosage: 25 MG, QD
  10. PREDNISONE [Concomitant]
     Dosage: 20 MG, QD
     Route: 048
  11. POTASSIUM CHLORIDE [Concomitant]
  12. CLARITIN [Concomitant]
  13. ALBUTEROL SULFATE AUTOHALER [Concomitant]
  14. ZOCOR [Concomitant]
     Dosage: 40 MG, QD
     Route: 048

REACTIONS (7)
  - MALAISE [None]
  - ABDOMINAL PAIN LOWER [None]
  - GASTROENTERITIS VIRAL [None]
  - BLOOD GLUCOSE INCREASED [None]
  - HYPOTENSION [None]
  - ANAEMIA [None]
  - ASTHENIA [None]
